FAERS Safety Report 15391458 (Version 1)
Quarter: 2018Q3

REPORT INFORMATION
  Report Type: Spontaneous
  Country: US (occurrence: US)
  Receive Date: 20180910
  Receipt Date: 20180910
  Transmission Date: 20181010
  Serious: No
  Sender: FDA-Public Use
  Company Number: None

PATIENT
  Age: 34 Year
  Sex: Female

DRUGS (1)
  1. CYCLOSPORINE CAP 100 MG MD [Suspect]
     Active Substance: CYCLOSPORINE
     Indication: APLASTIC ANAEMIA
     Dates: start: 201712

REACTIONS (3)
  - Abdominal discomfort [None]
  - Drug level fluctuating [None]
  - Dyspepsia [None]

NARRATIVE: CASE EVENT DATE: 20180910
